FAERS Safety Report 9123494 (Version 1)
Quarter: 2013Q1

REPORT INFORMATION
  Report Type: Spontaneous
  Country: CN (occurrence: None)
  Receive Date: 20130129
  Receipt Date: 20130129
  Transmission Date: 20140127
  Serious: No
  Sender: FDA-Public Use
  Company Number: VAL_01313_2013

PATIENT
  Age: 69 Year
  Sex: Male
  Weight: 63 kg

DRUGS (1)
  1. BENAZEPRIL HYDROCHLORIDE (BENAZEPRIL HYDROFHLORIDE) [Suspect]
     Indication: HYPERTENSION
     Route: 048
     Dates: start: 20111015, end: 20111029

REACTIONS (2)
  - Cough [None]
  - Blood pressure increased [None]
